FAERS Safety Report 11026575 (Version 1)
Quarter: 2015Q2

REPORT INFORMATION
  Report Type: Spontaneous
  Country: FR (occurrence: FR)
  Receive Date: 20150414
  Receipt Date: 20150414
  Transmission Date: 20150821
  Serious: Yes (Other)
  Sender: FDA-Public Use
  Company Number: FR-JNJFOC-20150409602

PATIENT
  Age: 62 Year
  Sex: Male

DRUGS (3)
  1. REMICADE [Suspect]
     Active Substance: INFLIXIMAB
     Indication: ANKYLOSING SPONDYLITIS
     Route: 042
     Dates: start: 201410
  2. REMICADE [Suspect]
     Active Substance: INFLIXIMAB
     Indication: ANKYLOSING SPONDYLITIS
     Route: 042
     Dates: start: 201401, end: 201409
  3. REMICADE [Suspect]
     Active Substance: INFLIXIMAB
     Indication: ANKYLOSING SPONDYLITIS
     Route: 042
     Dates: start: 20141126

REACTIONS (5)
  - Chills [Recovered/Resolved]
  - Infusion related reaction [Recovered/Resolved]
  - Hypothermia [Recovered/Resolved]
  - Pallor [Recovered/Resolved]
  - Surgery [Unknown]

NARRATIVE: CASE EVENT DATE: 2014
